FAERS Safety Report 12943046 (Version 1)
Quarter: 2016Q4

REPORT INFORMATION
  Report Type: Report from Study
  Country: US (occurrence: US)
  Receive Date: 20161115
  Receipt Date: 20161115
  Transmission Date: 20170207
  Serious: Yes (Other)
  Sender: FDA-Public Use
  Company Number: US-PFIZER INC-2016528446

PATIENT
  Age: 37 Year
  Sex: Female

DRUGS (1)
  1. PENTAZOCINE LACTATE [Suspect]
     Active Substance: PENTAZOCINE LACTATE
     Dosage: 300 MG PER 24 HR

REACTIONS (2)
  - Scleroderma [Unknown]
  - Drug abuse [Unknown]
